FAERS Safety Report 7987539-7 (Version None)
Quarter: 2011Q4

REPORT INFORMATION
  Report Type: 
  Country: None (occurrence: None)
  Receive Date: 20111216
  Receipt Date: 20111214
  Transmission Date: 20120403
  Serious: Yes (Hospitalization)
  Sender: FDA-Public Use
  Company Number: PHHY2011ZA108970

PATIENT
  Sex: Female

DRUGS (2)
  1. ACLASTA [Suspect]
     Dosage: 5 MG/ 100 ML
     Route: 042
     Dates: start: 20090101
  2. ACLASTA [Suspect]
     Dosage: 5 MG/ 100 ML
     Route: 042
     Dates: start: 20101101

REACTIONS (3)
  - ANXIETY [None]
  - MALAISE [None]
  - DEPRESSION [None]
